FAERS Safety Report 11224622 (Version 2)
Quarter: 2018Q1

REPORT INFORMATION
  Report Type: Spontaneous
  Country: US (occurrence: US)
  Receive Date: 20150629
  Receipt Date: 20180304
  Transmission Date: 20180508
  Serious: No
  Sender: FDA-Public Use
  Company Number: US-MYLANLABS-2014M1005715

PATIENT
  Sex: Female

DRUGS (10)
  1. DOXEPIN HYDROCHLORIDE CAPSULES, USP [Suspect]
     Active Substance: DOXEPIN HYDROCHLORIDE
     Indication: PANIC ATTACK
  2. DOXEPIN HYDROCHLORIDE CAPSULES, USP [Suspect]
     Active Substance: DOXEPIN HYDROCHLORIDE
     Indication: ANXIETY
  3. VALIUM [Concomitant]
     Active Substance: DIAZEPAM
     Indication: DEPRESSION
     Dosage: 2 MG, QD
  4. DOXEPIN [Suspect]
     Active Substance: DOXEPIN
     Indication: ANXIETY
     Dosage: 25 MG, QD
     Dates: start: 20171004
  5. DOXEPIN HYDROCHLORIDE CAPSULES, USP [Suspect]
     Active Substance: DOXEPIN HYDROCHLORIDE
     Indication: DEPRESSION
     Dosage: 25 MG, QD
     Route: 048
     Dates: start: 2007
  6. DOXEPIN [Suspect]
     Active Substance: DOXEPIN
     Indication: PANIC DISORDER
  7. DOXEPIN [Suspect]
     Active Substance: DOXEPIN
     Indication: DEPRESSION
  8. VALIUM [Concomitant]
     Active Substance: DIAZEPAM
     Indication: PANIC DISORDER
  9. SINEQUAN [Suspect]
     Active Substance: DOXEPIN HYDROCHLORIDE
     Indication: PRODUCT USED FOR UNKNOWN INDICATION
     Dosage: 25 MG, QD
     Dates: start: 1970
  10. VALIUM [Concomitant]
     Active Substance: DIAZEPAM
     Indication: ANXIETY
     Dosage: 2.5 MG, QD SHE WAS PRESCRIBED 10 MG TABLETS WHICH SHE CUTS IN 4 DIFFERENT PARTS. SHE TAKEN 1974-1975
     Route: 048

REACTIONS (13)
  - Hyperkeratosis [Not Recovered/Not Resolved]
  - Psoriasis [Unknown]
  - Dry skin [Not Recovered/Not Resolved]
  - Sleep disorder [Unknown]
  - Malaise [Unknown]
  - Rash pruritic [Not Recovered/Not Resolved]
  - Skin disorder [Unknown]
  - Skin burning sensation [Not Recovered/Not Resolved]
  - Blister rupture [Not Recovered/Not Resolved]
  - Eczema [Not Recovered/Not Resolved]
  - Blister [Not Recovered/Not Resolved]
  - Drug hypersensitivity [Not Recovered/Not Resolved]
  - Product substitution [Unknown]

NARRATIVE: CASE EVENT DATE: 2007
